FAERS Safety Report 8915761 (Version 1)
Quarter: 2012Q4

REPORT INFORMATION
  Report Type: 
  Country: US (occurrence: US)
  Receive Date: 20121119
  Receipt Date: 20121119
  Transmission Date: 20130627
  Serious: Yes (Other)
  Sender: FDA-Public Use
  Company Number: US-ELI_LILLY_AND_COMPANY-US201211002896

PATIENT
  Age: 70 Year
  Sex: Female

DRUGS (2)
  1. HUMALOG LISPRO [Suspect]
     Indication: TYPE 2 DIABETES MELLITUS
     Dosage: UNK, prn
     Route: 058
  2. LANTUS [Concomitant]
     Dosage: UNK

REACTIONS (8)
  - Cardiomegaly [Unknown]
  - Venous thrombosis limb [Unknown]
  - Thermal burn [Unknown]
  - Atrial fibrillation [Unknown]
  - Pain [Not Recovered/Not Resolved]
  - Blood glucose decreased [Unknown]
  - Oedema peripheral [Unknown]
  - Injection site pain [Recovering/Resolving]
